FAERS Safety Report 9100712 (Version 1)
Quarter: 2013Q1

REPORT INFORMATION
  Report Type: Report from Study
  Country: IT (occurrence: IT)
  Receive Date: 20130214
  Receipt Date: 20130214
  Transmission Date: 20140127
  Serious: Yes (Hospitalization, Other)
  Sender: FDA-Public Use
  Company Number: PHHO2012IT006598

PATIENT
  Age: 60 Year
  Sex: Male
  Weight: 70 kg

DRUGS (6)
  1. FTY [Suspect]
     Indication: RELAPSING-REMITTING MULTIPLE SCLEROSIS
     Dosage: 0.5 MG, UNK
     Dates: start: 20111012, end: 20120116
  2. APROVEL [Concomitant]
     Indication: HYPERTENSION
     Dosage: 150 MG, QD
     Dates: start: 2005, end: 20120212
  3. ASCRIPTIN [Concomitant]
     Indication: CARDIAC FAILURE
     Dosage: 300 MG, QD
     Dates: start: 2005
  4. APONIL [Concomitant]
     Indication: HYPERTENSION
     Dosage: 30 MG, QD
     Dates: start: 2005, end: 20120212
  5. TEGRETOL [Concomitant]
     Indication: TRIGEMINAL NEURALGIA
     Dosage: 600 MG, UNK
     Dates: start: 20111211
  6. LOPRESSOR [Concomitant]
     Indication: HYPERTENSION
     Dosage: 150 MG, QD
     Dates: start: 2005

REACTIONS (3)
  - Hyponatraemia [Unknown]
  - Hypertension [Recovered/Resolved]
  - Loss of consciousness [Recovered/Resolved]
